FAERS Safety Report 5865301-9 (Version None)
Quarter: 2008Q3

REPORT INFORMATION
  Report Type: 
  Country: None (occurrence: None)
  Receive Date: 20080829
  Receipt Date: 20080819
  Transmission Date: 20090109
  Serious: Yes (Death)
  Sender: FDA-Public Use
  Company Number: JP-MERCK-0808USA03724

PATIENT
  Age: 21 Year
  Sex: Female

DRUGS (1)
  1. DECADRON SRC [Suspect]
     Indication: EPSTEIN-BARR VIRUS INFECTION
     Route: 048

REACTIONS (3)
  - BRONCHIAL HAEMORRHAGE [None]
  - DRUG INEFFECTIVE [None]
  - EPSTEIN-BARR VIRUS INFECTION [None]
